FAERS Safety Report 7022224-X (Version None)
Quarter: 2010Q3

REPORT INFORMATION
  Report Type: 
  Country: None (occurrence: None)
  Receive Date: 20100930
  Receipt Date: 20100820
  Transmission Date: 20110219
  Serious: No
  Sender: FDA-Public Use
  Company Number: US-JNJFOC-20100807646

PATIENT
  Age: 37 Year
  Sex: Male
  Weight: 89.36 kg

DRUGS (3)
  1. INVEGA SUSTENNA [Suspect]
     Indication: LEARNING DISABILITY
     Route: 030
  2. INVEGA SUSTENNA [Suspect]
     Indication: BIPOLAR DISORDER
     Route: 030
  3. CLONIDINE [Concomitant]
     Indication: HYPERTENSION
     Route: 048

REACTIONS (5)
  - EATING DISORDER [None]
  - MALAISE [None]
  - NAUSEA [None]
  - SLUGGISHNESS [None]
  - VOMITING [None]
